FAERS Safety Report 7957682-7 (Version None)
Quarter: 2011Q4

REPORT INFORMATION
  Report Type: 
  Country: None (occurrence: None)
  Receive Date: 20111205
  Receipt Date: 20111126
  Transmission Date: 20120403
  Serious: Yes (Other)
  Sender: FDA-Public Use
  Company Number: US-BAYER-201034749NA

PATIENT
  Age: 21 Year
  Sex: Female
  Weight: 92.971 kg

DRUGS (5)
  1. IBUPROFEN (ADVIL) [Concomitant]
  2. IBUPROFEN [Concomitant]
  3. YASMIN [Suspect]
     Indication: PREMENSTRUAL SYNDROME
     Dosage: UNK
     Dates: start: 20030101, end: 20090101
  4. NAPROXEN [Concomitant]
  5. ZOLOFT [Concomitant]

REACTIONS (2)
  - GALLBLADDER DISORDER [None]
  - CHOLECYSTITIS ACUTE [None]
